FAERS Safety Report 4882210-2 (Version None)
Quarter: 2006Q1

REPORT INFORMATION
  Report Type: 
  Country: None (occurrence: None)
  Receive Date: 20060117
  Receipt Date: 20050404
  Transmission Date: 20060701
  Serious: Yes (Hospitalization, Other)
  Sender: FDA-Public Use
  Company Number: US-MERCK-0504USA00692

PATIENT
  Age: 47 Year
  Sex: Male
  Weight: 118 kg

DRUGS (4)
  1. VIOXX [Suspect]
     Route: 048
     Dates: start: 19990101
  2. TOPAMAX [Concomitant]
     Route: 065
  3. SEROQUEL [Concomitant]
     Route: 065
  4. TYLENOL W/ CODEINE [Concomitant]
     Route: 065

REACTIONS (23)
  - ABDOMINAL PAIN [None]
  - ACUTE MYOCARDIAL INFARCTION [None]
  - ARTERIOSCLEROSIS [None]
  - ARTHRALGIA [None]
  - CHEST DISCOMFORT [None]
  - CHEST PAIN [None]
  - CORONARY ARTERY INSUFFICIENCY [None]
  - CORONARY ARTERY OCCLUSION [None]
  - DYSPNOEA [None]
  - FATIGUE [None]
  - HAEMATOMA [None]
  - HYPERHIDROSIS [None]
  - HYPERTENSION [None]
  - MYOCARDIAL INFARCTION [None]
  - MYOCARDIAL ISCHAEMIA [None]
  - NASOPHARYNGITIS [None]
  - NAUSEA [None]
  - OBESITY [None]
  - OSTEOARTHRITIS [None]
  - PULMONARY CONGESTION [None]
  - RADICULITIS CERVICAL [None]
  - STENT OCCLUSION [None]
  - VOMITING [None]
